FAERS Safety Report 23468608 (Version 1)
Quarter: 2024Q1

REPORT INFORMATION
  Report Type: Report from Study
  Country: US (occurrence: US)
  Receive Date: 20240202
  Receipt Date: 20240202
  Transmission Date: 20240410
  Serious: Yes (Other)
  Sender: FDA-Public Use
  Company Number: US-ABBVIE-5610421

PATIENT
  Sex: Female

DRUGS (1)
  1. HUMIRA [Suspect]
     Active Substance: ADALIMUMAB
     Indication: Hidradenitis
     Route: 058
     Dates: start: 20230927, end: 20231220

REACTIONS (3)
  - Systemic lupus erythematosus [Recovering/Resolving]
  - Stomatitis [Recovering/Resolving]
  - Noninfective gingivitis [Recovering/Resolving]
